FAERS Safety Report 7519292-5 (Version None)
Quarter: 2011Q2

REPORT INFORMATION
  Report Type: 
  Country: None (occurrence: None)
  Receive Date: 20110602
  Receipt Date: 20110526
  Transmission Date: 20111010
  Serious: Yes (Other)
  Sender: FDA-Public Use
  Company Number: A0929265A

PATIENT
  Age: 68 Year
  Sex: Female
  Weight: 62.3 kg

DRUGS (4)
  1. ALLI [Suspect]
     Indication: WEIGHT LOSS DIET
     Route: 048
  2. ATIVAN [Concomitant]
     Indication: ANXIETY
  3. ZOLOFT [Concomitant]
     Indication: DEPRESSION
  4. NEXIUM [Concomitant]

REACTIONS (2)
  - HEPATIC ENZYME INCREASED [None]
  - DRUG ADMINISTRATION ERROR [None]
